FAERS Safety Report 5285974-1 (Version None)
Quarter: 2007Q2

REPORT INFORMATION
  Report Type: 
  Country: None (occurrence: None)
  Receive Date: 20070404
  Receipt Date: 20070328
  Transmission Date: 20071010
  Serious: Yes (Hospitalization)
  Sender: FDA-Public Use
  Company Number: JP-BRISTOL-MYERS SQUIBB COMPANY-13711486

PATIENT
  Age: 70 Year
  Sex: Female

DRUGS (15)
  1. ENDOXAN [Suspect]
     Indication: B-CELL LYMPHOMA
     Route: 041
     Dates: start: 20061025, end: 20061025
  2. DOXORUBICIN HCL [Suspect]
     Indication: B-CELL LYMPHOMA
     Route: 041
     Dates: start: 20061025, end: 20061025
  3. RITUXAN [Suspect]
     Indication: B-CELL LYMPHOMA
     Route: 041
     Dates: start: 20061025, end: 20061025
  4. ONCOVIN [Suspect]
     Indication: B-CELL LYMPHOMA
     Route: 041
     Dates: start: 20061025, end: 20061025
  5. ADRIAMYCIN PFS [Suspect]
     Indication: B-CELL LYMPHOMA
     Route: 041
     Dates: start: 20060704, end: 20061025
  6. AMLODIN [Concomitant]
  7. LIPITOR [Concomitant]
  8. TAKEPRON [Concomitant]
  9. PURSENNIDE [Concomitant]
  10. DEPAS [Concomitant]
  11. LOXONIN [Concomitant]
  12. PREDNISOLONE [Concomitant]
  13. KYTRIL [Concomitant]
  14. RESTAMIN [Concomitant]
  15. ACETAMINOPHEN [Concomitant]

REACTIONS (2)
  - INTERSTITIAL LUNG DISEASE [None]
  - PALPITATIONS [None]
